FAERS Safety Report 7258815-0 (Version None)
Quarter: 2011Q1

REPORT INFORMATION
  Report Type: 
  Country: None (occurrence: None)
  Receive Date: 20110129
  Receipt Date: 20100525
  Transmission Date: 20110831
  Serious: No
  Sender: FDA-Public Use
  Company Number: US-ABBOTT-10P-163-0647561-00

PATIENT
  Sex: Female
  Weight: 96.248 kg

DRUGS (2)
  1. ASACOL [Concomitant]
     Indication: CROHN'S DISEASE
     Dates: end: 20100524
  2. HUMIRA [Suspect]
     Indication: CROHN'S DISEASE
     Route: 058
     Dates: start: 20100524

REACTIONS (1)
  - INJECTION SITE PAIN [None]
